FAERS Safety Report 10081569 (Version 2)
Quarter: 2014Q2

REPORT INFORMATION
  Report Type: Spontaneous
  Country: JP (occurrence: JP)
  Receive Date: 20140416
  Receipt Date: 20140507
  Transmission Date: 20141212
  Serious: Yes (Death, Hospitalization)
  Sender: FDA-Public Use
  Company Number: JP-SA-2014SA042813

PATIENT
  Age: 65 Year
  Sex: Female

DRUGS (8)
  1. LASIX [Suspect]
     Indication: POLYURIA
     Dosage: STRENGTH: 20 MG
     Route: 042
     Dates: start: 20121229, end: 20121230
  2. ALDACTONE-A [Suspect]
     Indication: POLYURIA
     Dosage: FORM-FINE GRANULE
     Route: 048
     Dates: start: 20121231, end: 20130103
  3. ALDACTONE-A [Suspect]
     Indication: BLOOD POTASSIUM INCREASED
     Dosage: FORM-FINE GRANULE
     Route: 048
     Dates: start: 20121231, end: 20130103
  4. ACETYLCYSTEINE [Suspect]
     Indication: PRODUCTIVE COUGH
     Route: 048
     Dates: start: 20121231, end: 20130104
  5. GASTER [Suspect]
     Indication: PROPHYLAXIS
     Route: 042
     Dates: start: 20121227
  6. CEFAZOLIN [Suspect]
     Indication: INFECTION PROPHYLAXIS
     Route: 042
     Dates: start: 20121227, end: 20121228
  7. TAZOBACTAM [Suspect]
     Indication: ENDOCARDITIS
     Route: 042
     Dates: start: 20130101, end: 20130104
  8. TAZOBACTAM [Suspect]
     Indication: ENDOCARDITIS
     Route: 065

REACTIONS (2)
  - Sepsis [Fatal]
  - Toxic epidermal necrolysis [Recovering/Resolving]
